FAERS Safety Report 9714580 (Version 2)
Quarter: 2014Q1

REPORT INFORMATION
  Report Type: Spontaneous
  Country: GB (occurrence: GB)
  Receive Date: 20131126
  Receipt Date: 20140120
  Transmission Date: 20141002
  Serious: Yes (Other)
  Sender: FDA-Public Use
  Company Number: GB-MYLANLABS-2013S1025789

PATIENT
  Age: 66 Year
  Sex: Male

DRUGS (6)
  1. CALCIUM FOLINATE [Suspect]
     Indication: COLORECTAL CANCER METASTATIC
  2. IRINOTECAN [Suspect]
     Indication: COLORECTAL CANCER METASTATIC
  3. OXALIPLATIN [Suspect]
     Indication: COLORECTAL CANCER METASTATIC
  4. BEVACIZUMAB [Suspect]
     Indication: COLORECTAL CANCER METASTATIC
     Route: 042
     Dates: start: 20130617, end: 20130724
  5. CAPECITABINE [Suspect]
     Indication: COLORECTAL CANCER METASTATIC
  6. FLUOROURACIL [Suspect]
     Indication: COLORECTAL CANCER METASTATIC

REACTIONS (1)
  - Wound complication [Recovered/Resolved]
